FAERS Safety Report 4528867-7 (Version None)
Quarter: 2004Q4

REPORT INFORMATION
  Report Type: 
  Country: None (occurrence: None)
  Receive Date: 20041216
  Receipt Date: 20041206
  Transmission Date: 20050328
  Serious: Yes (Hospitalization, Other)
  Sender: FDA-Public Use
  Company Number: US-JNJFOC-20040606418

PATIENT
  Sex: Female
  Weight: 58.06 kg

DRUGS (1)
  1. REMICADE [Suspect]
     Indication: RHEUMATOID ARTHRITIS
     Route: 042

REACTIONS (7)
  - COLONIC POLYP [None]
  - DIFFUSE LARGE B-CELL LYMPHOMA [None]
  - ECZEMA [None]
  - NEUTROPENIA [None]
  - PYREXIA [None]
  - RETINAL HAEMORRHAGE [None]
  - URINARY TRACT INFECTION [None]
